FAERS Safety Report 20553237 (Version 1)
Quarter: 2022Q1

REPORT INFORMATION
  Report Type: Spontaneous
  Country: US (occurrence: None)
  Receive Date: 20220304
  Receipt Date: 20220304
  Transmission Date: 20220423
  Serious: No
  Sender: FDA-Public Use
  Company Number: 2022A058640

PATIENT
  Sex: Female
  Weight: 65.3 kg

DRUGS (1)
  1. SYMBICORT [Suspect]
     Active Substance: BUDESONIDE\FORMOTEROL FUMARATE DIHYDRATE
     Indication: Dyspnoea
     Dosage: 160/4,5 UG, UNKNOWN FREQUENCY UNKNOWN
     Route: 055

REACTIONS (7)
  - Flushing [Unknown]
  - Stress [Unknown]
  - Nervousness [Unknown]
  - Erythema [Unknown]
  - Product dose omission issue [Unknown]
  - Device use issue [Unknown]
  - Device issue [Unknown]
